FAERS Safety Report 12164779 (Version 1)
Quarter: 2016Q1

REPORT INFORMATION
  Report Type: Spontaneous
  Country: JP (occurrence: JP)
  Receive Date: 20160309
  Receipt Date: 20160309
  Transmission Date: 20160526
  Serious: Yes (Hospitalization)
  Sender: FDA-Public Use
  Company Number: JP-EDISONTHERAPEUTICS-2016-JP-000002

PATIENT
  Age: 27 Year
  Sex: Female

DRUGS (1)
  1. METHERGINE [Suspect]
     Active Substance: METHYLERGONOVINE MALEATE
     Route: 042

REACTIONS (5)
  - Aphasia [Unknown]
  - Hemiplegia [Unknown]
  - Hypertension [Unknown]
  - Headache [Unknown]
  - Reversible cerebral vasoconstriction syndrome [Unknown]
